FAERS Safety Report 13940896 (Version 2)
Quarter: 2017Q4

REPORT INFORMATION
  Report Type: Spontaneous
  Country: US (occurrence: US)
  Receive Date: 20170906
  Receipt Date: 20171109
  Transmission Date: 20180320
  Serious: Yes (Other)
  Sender: FDA-Public Use
  Company Number: US-GILEAD-2017-0291645

PATIENT
  Age: 65 Year
  Sex: Female
  Weight: 52.15 kg

DRUGS (7)
  1. HARVONI [Suspect]
     Active Substance: LEDIPASVIR\SOFOSBUVIR
     Indication: CHRONIC HEPATITIS C
     Dosage: UNK
     Route: 065
  2. ASA [Concomitant]
     Active Substance: ASPIRIN
     Dosage: 81 MG, UNK
     Route: 048
  3. CHINA SLIM TEA [Concomitant]
     Indication: CONSTIPATION
     Dosage: CUP
  4. FISH OIL [Concomitant]
     Active Substance: FISH OIL
     Dosage: UNK, QD
     Route: 048
  5. FELODIPINE. [Concomitant]
     Active Substance: FELODIPINE
     Dosage: 5 MG, QD
     Route: 048
  6. MAGNESIUM CITRATE. [Concomitant]
     Active Substance: MAGNESIUM CITRATE
     Dosage: UNK, QD
     Route: 048
  7. CALCIUM [Concomitant]
     Active Substance: CALCIUM
     Dosage: UNK, QD
     Route: 048

REACTIONS (3)
  - Hepatitis C [Unknown]
  - Drug ineffective [Unknown]
  - Treatment failure [Unknown]
